FAERS Safety Report 23298406 (Version 3)
Quarter: 2024Q1

REPORT INFORMATION
  Report Type: Spontaneous
  Country: US (occurrence: US)
  Receive Date: 20231214
  Receipt Date: 20240219
  Transmission Date: 20240410
  Serious: Yes (Hospitalization, Other)
  Sender: FDA-Public Use
  Company Number: US-PFIZER INC-202300441456

PATIENT
  Age: 65 Year
  Sex: Female
  Weight: 63.039 kg

DRUGS (3)
  1. PREMPRO [Suspect]
     Active Substance: ESTROGENS, CONJUGATED\MEDROXYPROGESTERONE ACETATE
     Indication: Hot flush
     Dosage: UNK
     Dates: start: 2011, end: 2017
  2. PREMPRO [Suspect]
     Active Substance: ESTROGENS, CONJUGATED\MEDROXYPROGESTERONE ACETATE
     Indication: Night sweats
     Dosage: 0.3 TO 1.5 MG ONCE A DAY
     Dates: start: 201008, end: 2016
  3. PAROXETINE [Suspect]
     Active Substance: PAROXETINE
     Indication: Depression
     Dosage: 10 MG, 1X/DAY
     Dates: start: 200803, end: 2016

REACTIONS (5)
  - Breast cancer [Not Recovered/Not Resolved]
  - Invasive ductal breast carcinoma [Not Recovered/Not Resolved]
  - Breast reconstruction [Not Recovered/Not Resolved]
  - Lymphadenectomy [Unknown]
  - Axillary web syndrome [Not Recovered/Not Resolved]

NARRATIVE: CASE EVENT DATE: 20230601
